FAERS Safety Report 8508994-X (Version None)
Quarter: 2012Q3

REPORT INFORMATION
  Report Type: 
  Country: None (occurrence: None)
  Receive Date: 20120713
  Receipt Date: 20120706
  Transmission Date: 20120928
  Serious: Yes (Other)
  Sender: FDA-Public Use
  Company Number: FR-PFIZER INC-2012162220

PATIENT

DRUGS (1)
  1. XALATAN [Suspect]

REACTIONS (1)
  - CATARACT [None]
